FAERS Safety Report 21024012 (Version 1)
Quarter: 2022Q2

REPORT INFORMATION
  Report Type: Spontaneous
  Country: US (occurrence: None)
  Receive Date: 20220629
  Receipt Date: 20220629
  Transmission Date: 20220720
  Serious: Yes (Life-Threatening, Hospitalization)
  Sender: FDA-Public Use
  Company Number: None

PATIENT
  Age: 51 Year
  Sex: Female

DRUGS (1)
  1. COSENTYX [Suspect]
     Active Substance: SECUKINUMAB
     Route: 058
     Dates: start: 201912, end: 202204

REACTIONS (7)
  - Bacterial vaginosis [None]
  - Chest pain [None]
  - Heart rate increased [None]
  - Syncope [None]
  - Cardiac disorder [None]
  - Malaise [None]
  - Thyroid disorder [None]

NARRATIVE: CASE EVENT DATE: 20220406
